FAERS Safety Report 9678150 (Version 1)
Quarter: 2013Q4

REPORT INFORMATION
  Report Type: Spontaneous
  Country: US (occurrence: None)
  Receive Date: 20131107
  Receipt Date: 20131107
  Transmission Date: 20140711
  Serious: Yes (Hospitalization)
  Sender: FDA-Public Use
  Company Number: None

PATIENT
  Age: 72 Year
  Sex: Female

DRUGS (3)
  1. BACLOFEN [Suspect]
     Indication: PAIN IN EXTREMITY
     Dosage: 1 TABLET TID ORAL
     Route: 048
     Dates: start: 20130521, end: 20130528
  2. PREGABALIN [Concomitant]
  3. OXYCODONE/ACETAMINOPHEN [Concomitant]

REACTIONS (4)
  - Mental status changes [None]
  - Somnolence [None]
  - Dialysis [None]
  - Drug administration error [None]
